FAERS Safety Report 26079882 (Version 3)
Quarter: 2025Q4

REPORT INFORMATION
  Report Type: Spontaneous
  Country: US (occurrence: None)
  Receive Date: 20251118
  Receipt Date: 20251125
  Transmission Date: 20260117
  Serious: No
  Sender: UCB
  Company Number: US-UCBSA-2024061122

PATIENT
  Age: 24 Year

DRUGS (5)
  1. VIMPAT [Suspect]
     Active Substance: LACOSAMIDE
     Indication: Lennox-Gastaut syndrome
     Dosage: 400 MILLIGRAM, 2X/DAY (BID)
  2. VIMPAT [Suspect]
     Active Substance: LACOSAMIDE
     Indication: Off label use
  3. CLOBAZAM [Suspect]
     Active Substance: CLOBAZAM
     Indication: Lennox-Gastaut syndrome
     Dosage: 120 MILLIGRAM, TOTAL, 40 MG QAM AND 80 MG QPM
  4. ZONISAMIDE [Suspect]
     Active Substance: ZONISAMIDE
     Indication: Lennox-Gastaut syndrome
     Dosage: 300 MILLIGRAM, ONCE DAILY (QD), QPM
  5. CENOBAMATE [Suspect]
     Active Substance: CENOBAMATE
     Indication: Lennox-Gastaut syndrome
     Dosage: 400 MILLIGRAM

REACTIONS (3)
  - Sedation [Unknown]
  - Dizziness [Unknown]
  - Off label use [Unknown]
